FAERS Safety Report 10556626 (Version 3)
Quarter: 2015Q3

REPORT INFORMATION
  Report Type: Report from Study
  Country: US (occurrence: US)
  Receive Date: 20141031
  Receipt Date: 20150714
  Transmission Date: 20151125
  Serious: Yes (Death, Other)
  Sender: FDA-Public Use
  Company Number: PHEH2014US021701

PATIENT
  Age: 94 Year
  Sex: Female
  Weight: 58.2 kg

DRUGS (2)
  1. GLEEVEC [Suspect]
     Active Substance: IMATINIB MESYLATE
     Dosage: 200 MG, QD
     Route: 048
  2. GLEEVEC [Suspect]
     Active Substance: IMATINIB MESYLATE
     Indication: GASTROINTESTINAL STROMAL TUMOUR
     Dosage: 400 MG, QD
     Route: 065
     Dates: start: 20111027

REACTIONS (11)
  - Gastrointestinal stromal tumour [Fatal]
  - Oncologic complication [Fatal]
  - Recurrent cancer [Unknown]
  - Metastases to lung [Fatal]
  - Pelvic neoplasm [Unknown]
  - Diarrhoea [Unknown]
  - Hypophagia [Unknown]
  - Malignant neoplasm progression [Fatal]
  - Second primary malignancy [Unknown]
  - Abdominal pain [Unknown]
  - Fluid retention [Unknown]

NARRATIVE: CASE EVENT DATE: 20140908
